FAERS Safety Report 4853601-0 (Version None)
Quarter: 2005Q4

REPORT INFORMATION
  Report Type: 
  Country: None (occurrence: None)
  Receive Date: 20051212
  Receipt Date: 20051130
  Transmission Date: 20060501
  Serious: Yes (Other)
  Sender: FDA-Public Use
  Company Number: 2005151585

PATIENT
  Age: 53 Year
  Sex: Female
  Weight: 110 kg

DRUGS (10)
  1. ZYVOX [Suspect]
     Indication: OSTEITIS
     Dosage: 1200 MG (600 MG, BID INTERVAL: EVERY DAY); ORAL
     Route: 048
     Dates: start: 20050219, end: 20050315
  2. WARFARIN SODIUM [Concomitant]
  3. LEVOFLOXACIN [Concomitant]
  4. PRAVACHOL [Concomitant]
  5. EMCONCOR (BISOPROLOL) [Concomitant]
  6. ARANESP [Concomitant]
  7. EPOETIN BETA (EPOETIN BETA) [Concomitant]
  8. FUROSEMIDE [Concomitant]
  9. INSULIN PROTAPHAN HUMAN (INSULIN HUMAN INJECTION, ISOPHANE) [Concomitant]
  10. TRAMADOL HCL [Concomitant]

REACTIONS (4)
  - HAEMOGLOBIN DECREASED [None]
  - INTERNATIONAL NORMALISED RATIO INCREASED [None]
  - LEUKOPENIA [None]
  - THROMBOCYTOPENIA [None]
